FAERS Safety Report 9240653 (Version 1)
Quarter: 2013Q1

REPORT INFORMATION
  Report Type: Spontaneous
  Country: US (occurrence: None)
  Receive Date: 20121120
  Receipt Date: 20121120
  Transmission Date: 20140127
  Serious: No
  Sender: FDA-Public Use
  Company Number: 1000038740

PATIENT
  Age: 60 Year
  Sex: Male

DRUGS (7)
  1. VIIBRYD (VILAZODONE HYDROCHLORIDE) [Suspect]
     Indication: DEPRESSION
     Route: 048
     Dates: start: 20120918, end: 20120918
  2. HYDROCODONE (HYDROCODONE) [Concomitant]
  3. XANAX (ALPRAZOLAM) [Concomitant]
  4. VITAMIN B 12 (VITAMIN B NOS) [Concomitant]
  5. ALLPURINOL (ALLOPURINOL) [Concomitant]
  6. VALSARTAN/HYDROCHLOROTHIAZIDE (CO-DIOVAN) [Concomitant]
  7. SEROQUEL (QUIETIAPINE FUMARATE) [Concomitant]

REACTIONS (2)
  - Hypotension [None]
  - Dizziness [None]
